FAERS Safety Report 7071451-4 (Version None)
Quarter: 2010Q4

REPORT INFORMATION
  Report Type: 
  Country: None (occurrence: None)
  Receive Date: 20101029
  Receipt Date: 20090903
  Transmission Date: 20110411
  Serious: No
  Sender: FDA-Public Use
  Company Number: A0805799A

PATIENT
  Age: 78 Year
  Sex: Male

DRUGS (7)
  1. ADVAIR DISKUS 100/50 [Suspect]
     Indication: CHRONIC OBSTRUCTIVE PULMONARY DISEASE
     Dosage: 1PUFF THREE TIMES PER DAY
     Route: 055
     Dates: start: 20080101
  2. PREVACID [Concomitant]
  3. DILTIAZEM [Concomitant]
  4. OXYBUTYNIN [Concomitant]
  5. AZOPT [Concomitant]
  6. LEVOBUNOLOL HCL [Concomitant]
  7. SIMVASTATIN [Concomitant]

REACTIONS (1)
  - OROPHARYNGEAL PAIN [None]
